FAERS Safety Report 8830723 (Version 1)
Quarter: 2012Q4

REPORT INFORMATION
  Report Type: 
  Country: US (occurrence: US)
  Receive Date: 20121009
  Receipt Date: 20121009
  Transmission Date: 20130627
  Serious: Yes (Other)
  Sender: FDA-Public Use
  Company Number: US-JNJFOC-20121000231

PATIENT
  Age: 55 Year
  Sex: Female
  Weight: 77.11 kg

DRUGS (4)
  1. BENADRYL ALLERGY DYE FREE [Suspect]
     Indication: MULTIPLE ALLERGIES
     Dosage: for 1 year
     Route: 048
  2. CELEXA [Concomitant]
     Indication: DEPRESSION
     Dosage: 10 years
     Route: 065
  3. METOPROLOL [Concomitant]
     Indication: HYPERTENSION
     Dosage: 10 years
     Route: 065
  4. LISINOPRIL [Concomitant]
     Indication: HYPERTENSION
     Dosage: 10 years
     Route: 065

REACTIONS (1)
  - Glaucoma [Unknown]
